FAERS Safety Report 21778916 (Version 3)
Quarter: 2023Q1

REPORT INFORMATION
  Report Type: Report from Study
  Country: CA (occurrence: CA)
  Receive Date: 20221226
  Receipt Date: 20230214
  Transmission Date: 20230417
  Serious: No
  Sender: FDA-Public Use
  Company Number: CA-JNJFOC-20221225133

PATIENT
  Age: 15 Year
  Sex: Female
  Weight: 50 kg

DRUGS (2)
  1. REMICADE [Suspect]
     Active Substance: INFLIXIMAB
     Indication: Colitis ulcerative
     Dosage: 10MG/KG 0,1,4 Q4. ON 20-DEC-2022, THE PATIENT COMPLETED HER PARTIAL MAYO AND RECEIVED 2ND INFUSION O
     Route: 042
     Dates: start: 20221213
  2. REMICADE [Suspect]
     Active Substance: INFLIXIMAB
     Dosage: INCREASED DOSE /STAT DOSE
     Route: 042

REACTIONS (4)
  - General physical health deterioration [Unknown]
  - Frequent bowel movements [Unknown]
  - Drug level decreased [Unknown]
  - Off label use [Unknown]

NARRATIVE: CASE EVENT DATE: 20221213
